FAERS Safety Report 4933639-5 (Version None)
Quarter: 2006Q1

REPORT INFORMATION
  Report Type: 
  Country: None (occurrence: None)
  Receive Date: 20060306
  Receipt Date: 20060227
  Transmission Date: 20060701
  Serious: Yes (Other)
  Sender: FDA-Public Use
  Company Number: GB-BRISTOL-MYERS SQUIBB COMPANY-13297098

PATIENT
  Age: 15 Year
  Sex: Male

DRUGS (3)
  1. DIDANOSINE [Suspect]
  2. STAVUDINE [Suspect]
  3. EFAVIRENZ [Suspect]

REACTIONS (1)
  - GYNAECOMASTIA [None]
